FAERS Safety Report 8252816-1 (Version None)
Quarter: 2012Q2

REPORT INFORMATION
  Report Type: 
  Country: None (occurrence: None)
  Receive Date: 20120402
  Receipt Date: 20120104
  Transmission Date: 20120825
  Serious: No
  Sender: FDA-Public Use
  Company Number: US-ABBOTT-12P-163-0890674-00

PATIENT
  Age: 66 Year
  Sex: Male
  Weight: 93.07 kg

DRUGS (2)
  1. UNKNOWN MEDICATION [Concomitant]
     Indication: BLOOD CHOLESTEROL
  2. ANDROGEL [Suspect]
     Indication: BLOOD TESTOSTERONE DECREASED
     Dosage: 4 PUMPS
     Dates: start: 20111229

REACTIONS (2)
  - APPLICATION SITE RASH [None]
  - INCORRECT ROUTE OF DRUG ADMINISTRATION [None]
